FAERS Safety Report 7934723-4 (Version None)
Quarter: 2011Q4

REPORT INFORMATION
  Report Type: 
  Country: None (occurrence: None)
  Receive Date: 20111122
  Receipt Date: 20090901
  Transmission Date: 20120403
  Serious: Yes (Other)
  Sender: FDA-Public Use
  Company Number: PHHY2010TW17639

PATIENT
  Sex: Female

DRUGS (1)
  1. GLEEVEC [Suspect]
     Indication: GASTROINTESTINAL STROMAL TUMOUR
     Dosage: 400 MG
     Route: 048

REACTIONS (10)
  - DEPRESSION [None]
  - SNORING [None]
  - MUSCLE SPASMS [None]
  - OEDEMA [None]
  - UTERINE LEIOMYOMA [None]
  - OVARIAN NEOPLASM [None]
  - VISION BLURRED [None]
  - IRREGULAR SLEEP PHASE [None]
  - EYE OEDEMA [None]
  - SKIN FRAGILITY [None]
